FAERS Safety Report 7277963-2 (Version None)
Quarter: 2011Q1

REPORT INFORMATION
  Report Type: 
  Country: None (occurrence: None)
  Receive Date: 20110207
  Receipt Date: 20110124
  Transmission Date: 20110831
  Serious: Yes (Other)
  Sender: FDA-Public Use
  Company Number: US-ELI_LILLY_AND_COMPANY-US201101006532

PATIENT
  Sex: Female

DRUGS (1)
  1. EFFIENT [Suspect]
     Indication: ANGIOGRAM ABNORMAL

REACTIONS (2)
  - ARTERIAL THROMBOSIS [None]
  - THERAPEUTIC RESPONSE DECREASED [None]
